FAERS Safety Report 22099176 (Version 1)
Quarter: 2023Q1

REPORT INFORMATION
  Report Type: Spontaneous
  Country: US (occurrence: US)
  Receive Date: 20230315
  Receipt Date: 20230315
  Transmission Date: 20230417
  Serious: No
  Sender: FDA-Public Use
  Company Number: US-ABBVIE-4341114

PATIENT
  Sex: Female

DRUGS (2)
  1. VENCLEXTA [Suspect]
     Active Substance: VENETOCLAX
     Indication: Leukaemia
     Dosage: FOR CYCLE 2 AND THEREAFTER, TAKE 4 TALETS BY MOUTH ON DAYS 1-14 THEN OFF FOR 14 DAYS.?FORM STRENG...
     Route: 048
  2. VENCLEXTA [Suspect]
     Active Substance: VENETOCLAX
     Indication: Leukaemia
     Dosage: CYCLE 1,TAKE 1 TAB BY MOUTH ON DAY 1,2 TAB ON DAY 2,THEN 4 TAB ON DAYS 3-14,THEN OFF FOR 14 DAYS?...
     Route: 048

REACTIONS (3)
  - Off label use [Unknown]
  - Platelet count decreased [Unknown]
  - Aphasia [Unknown]
